FAERS Safety Report 6538766-7 (Version None)
Quarter: 2010Q1

REPORT INFORMATION
  Report Type: 
  Country: None (occurrence: None)
  Receive Date: 20100115
  Receipt Date: 20100104
  Transmission Date: 20100710
  Serious: Yes (Other)
  Sender: FDA-Public Use
  Company Number: CA-SOLVAY-00309007781

PATIENT
  Age: 17839 Day
  Sex: Female
  Weight: 68.181 kg

DRUGS (5)
  1. ANDROGEL [Suspect]
     Indication: ANDROGEN REPLACEMENT THERAPY
     Dosage: DAILY DOSE:  UNKNOWN, AS USED: ONE-HALF PUMP DAILY, FREQUENCY: ONCE A DAY, VIA PUMP
     Route: 062
     Dates: start: 20090226, end: 20090101
  2. ANDROGEL [Suspect]
     Dosage: DAILY DOSE:  UNKNOWN
     Route: 062
     Dates: start: 20090501, end: 20090101
  3. ANDROGEL [Suspect]
     Dosage: DAILY DOSE:  UNKNOWN, AS USED: ONE-HALF PUMP DAILY
     Route: 065
     Dates: start: 20091125
  4. ESTRADOT 100 PATCH [Concomitant]
     Indication: OESTROGEN REPLACEMENT THERAPY
     Dosage: DAILY DOSE: 1 DOSAGE FORM, AS USED: 1 PATCH, FREQUENCY: TWICE/WEEK
     Route: 061
     Dates: start: 20091026
  5. PROMETRIUM [Concomitant]
     Indication: PROGESTIN REPLACEMENT THERAPY
     Dosage: DAILY DOSE: 200 MILLIGRAM(S), AT BED TIME
     Route: 048
     Dates: start: 20091004

REACTIONS (5)
  - DRUG INEFFECTIVE [None]
  - FATIGUE [None]
  - LOSS OF LIBIDO [None]
  - MEDICATION RESIDUE [None]
  - OFF LABEL USE [None]
